FAERS Safety Report 5229926-6 (Version None)
Quarter: 2007Q1

REPORT INFORMATION
  Report Type: 
  Country: None (occurrence: None)
  Receive Date: 20070206
  Receipt Date: 20070126
  Transmission Date: 20070707
  Serious: Yes (Other)
  Sender: FDA-Public Use
  Company Number: FR-PFIZER INC-2007002245

PATIENT
  Sex: Female

DRUGS (8)
  1. LYRICA [Suspect]
     Indication: SCIATICA
     Route: 048
     Dates: start: 20060101, end: 20060801
  2. LYRICA [Suspect]
     Indication: PAIN
  3. LYRICA [Suspect]
     Indication: OSTEOPOROTIC FRACTURE
  4. ATACAND [Concomitant]
     Route: 048
  5. FLECAINIDE ACETATE [Concomitant]
     Route: 048
  6. SECTRAL [Concomitant]
     Indication: HYPERTENSION
     Route: 048
  7. PAROXETINE HCL [Concomitant]
     Route: 048
  8. PREVISCAN [Concomitant]
     Indication: ARRHYTHMIA
     Route: 048

REACTIONS (2)
  - HEPATITIS [None]
  - HEPATITIS ACUTE [None]
